FAERS Safety Report 20391346 (Version 1)
Quarter: 2022Q1

REPORT INFORMATION
  Report Type: Spontaneous
  Country: US (occurrence: None)
  Receive Date: 20220127
  Receipt Date: 20220127
  Transmission Date: 20220424
  Serious: No
  Sender: FDA-Public Use
  Company Number: None

PATIENT
  Age: 67 Year
  Sex: Female
  Weight: 67.05 kg

DRUGS (1)
  1. PROLIA [Suspect]
     Active Substance: DENOSUMAB
     Indication: Bone density decreased
     Dates: start: 20210827, end: 20210827

REACTIONS (8)
  - Muscle spasms [None]
  - Pain [None]
  - Feeling cold [None]
  - Malaise [None]
  - Body temperature increased [None]
  - Palpitations [None]
  - Blood pressure increased [None]
  - Migraine [None]

NARRATIVE: CASE EVENT DATE: 20210827
